FAERS Safety Report 7375941-6 (Version None)
Quarter: 2011Q1

REPORT INFORMATION
  Report Type: 
  Country: None (occurrence: None)
  Receive Date: 20110325
  Receipt Date: 20110302
  Transmission Date: 20110831
  Serious: No
  Sender: FDA-Public Use
  Company Number: US-B.I. PHARMACEUTICALS,INC./RIDGEFIELD-2011-BP-02015BP

PATIENT
  Age: 67 Year
  Sex: Male

DRUGS (9)
  1. PRADAXA [Suspect]
     Indication: ATRIAL FIBRILLATION
     Dosage: 300 MG
     Route: 048
     Dates: start: 20101101
  2. SIMVASTATIN [Concomitant]
     Dosage: 40 MG
  3. KLOR-CON [Concomitant]
     Dosage: M 20; 2 DAILY
  4. METFORMIN HCL [Concomitant]
     Dosage: 2000 MG
  5. FUROSEMIDE [Concomitant]
     Dosage: 160 MG
  6. BENAZEPRIL HYDROCHLORIDE [Concomitant]
     Dosage: 10 MG
  7. ALLOPURINOL [Concomitant]
     Indication: GOUT
     Dosage: 600 MG
  8. LANTUS [Concomitant]
     Indication: DIABETES MELLITUS
     Dosage: LANTUS U 100 U
  9. ASPIRIN [Concomitant]
     Dosage: 81 MG

REACTIONS (1)
  - GOUT [None]
